FAERS Safety Report 6972678-X (Version None)
Quarter: 2010Q3

REPORT INFORMATION
  Report Type: 
  Country: None (occurrence: None)
  Receive Date: 20100909
  Receipt Date: 20091124
  Transmission Date: 20110219
  Serious: No
  Sender: FDA-Public Use
  Company Number: US-KINGPHARMUSA00001-K200901487

PATIENT
  Age: 47 Year
  Sex: Female
  Weight: 58.05 kg

DRUGS (3)
  1. CYTOMEL [Suspect]
     Indication: HYPOTHYROIDISM
     Dosage: 25 MCG, QD
     Route: 048
     Dates: start: 20090901, end: 20091020
  2. CYTOMEL [Suspect]
     Dosage: 50 MCG, QD
     Route: 048
     Dates: start: 20091021
  3. TRAZODONE HCL [Concomitant]
     Indication: INSOMNIA
     Dosage: UNK, PRN

REACTIONS (1)
  - WEIGHT DECREASED [None]
